FAERS Safety Report 25608515 (Version 1)
Quarter: 2025Q3

REPORT INFORMATION
  Report Type: Spontaneous
  Country: US (occurrence: US)
  Receive Date: 20250726
  Receipt Date: 20250726
  Transmission Date: 20251020
  Serious: Yes (Hospitalization)
  Sender: ACCORD
  Company Number: US-MLMSERVICE-20250711-PI574007-00232-1

PATIENT
  Age: 59 Year
  Sex: Male

DRUGS (2)
  1. MYCOPHENOLIC ACID [Suspect]
     Active Substance: MYCOPHENOLIC ACID
     Indication: Kidney transplant rejection
  2. PREDNISONE [Suspect]
     Active Substance: PREDNISONE
     Indication: Kidney transplant rejection

REACTIONS (2)
  - Pulmonary mucormycosis [Recovered/Resolved]
  - Mucormycosis [Recovered/Resolved]
